FAERS Safety Report 16699480 (Version 1)
Quarter: 2019Q3

REPORT INFORMATION
  Report Type: Spontaneous
  Country: US (occurrence: US)
  Receive Date: 20190813
  Receipt Date: 20190813
  Transmission Date: 20191004
  Serious: Yes (Other)
  Sender: FDA-Public Use
  Company Number: US-ASSERTIO THERAPEUTICS, INC.-US-2019DEP000468

PATIENT
  Sex: Female

DRUGS (1)
  1. CAMBIA [Suspect]
     Active Substance: DICLOFENAC POTASSIUM
     Indication: MIGRAINE
     Dosage: 50 MG, MIX ONE PACKET WITH 1-2 OUNCES OF WATER. DRINK IMMEDIATELY AS A SINGLE DOSE.
     Route: 048
     Dates: start: 20190415

REACTIONS (2)
  - Product use in unapproved indication [Unknown]
  - Upper gastrointestinal haemorrhage [Recovering/Resolving]
